FAERS Safety Report 15690603 (Version 1)
Quarter: 2018Q4

REPORT INFORMATION
  Report Type: Spontaneous
  Country: IT (occurrence: IT)
  Receive Date: 20181205
  Receipt Date: 20181205
  Transmission Date: 20190205
  Serious: Yes (Hospitalization, Other)
  Sender: FDA-Public Use
  Company Number: IT-PFIZER INC-18474

PATIENT
  Age: 59 Year
  Sex: Male

DRUGS (10)
  1. VIOXX [Concomitant]
     Active Substance: ROFECOXIB
     Dosage: 1 DF, UNK
  2. DILATREND [Concomitant]
     Active Substance: CARVEDILOL
     Dosage: 2 DF, UNK
  3. MEDROL [METHYLPREDNISOLONE ACETATE] [Concomitant]
     Active Substance: METHYLPREDNISOLONE ACETATE
     Dosage: 4 MG, UNK
  4. ASPIRIN [ACETYLSALICYLIC ACID] [Concomitant]
     Active Substance: ASPIRIN
     Dosage: 100 MG, UNK
     Route: 048
  5. RENAGEL [SEVELAMER CARBONATE] [Concomitant]
     Dosage: 8 DF, UNK
     Route: 048
  6. ROCALTROL [Concomitant]
     Active Substance: CALCITRIOL
  7. TORA DOL [Concomitant]
     Active Substance: KETOROLAC TROMETHAMINE
  8. FOLINA [CALCIUM FOLINATE] [Concomitant]
     Dosage: 5 MG, UNK
     Route: 048
  9. METHOTREXATE SODIUM. [Suspect]
     Active Substance: METHOTREXATE SODIUM
     Indication: PSORIATIC ARTHROPATHY
     Dosage: 10 MG, 1X/DAY
     Dates: start: 20040612, end: 20040619
  10. OMEPRAZEN [OMEPRAZOLE] [Concomitant]
     Dosage: 1 DF, UNK

REACTIONS (4)
  - Bone marrow failure [Not Recovered/Not Resolved]
  - Infection susceptibility increased [Not Recovered/Not Resolved]
  - Gastrointestinal haemorrhage [Not Recovered/Not Resolved]
  - Inappropriate schedule of product administration [Unknown]

NARRATIVE: CASE EVENT DATE: 20040612
